FAERS Safety Report 5263076-8 (Version None)
Quarter: 2007Q1

REPORT INFORMATION
  Report Type: 
  Country: None (occurrence: None)
  Receive Date: 20070312
  Receipt Date: 20070305
  Transmission Date: 20070707
  Serious: Yes (Hospitalization, Other)
  Sender: FDA-Public Use
  Company Number: US-PFIZER INC-2006144423

PATIENT
  Sex: Female
  Weight: 79.8 kg

DRUGS (2)
  1. CHANTIX [Suspect]
     Indication: SMOKER
     Route: 048
     Dates: start: 20060929, end: 20061020
  2. CHANTIX [Suspect]
     Indication: EX-SMOKER

REACTIONS (3)
  - ABNORMAL SENSATION IN EYE [None]
  - EXTRAOCULAR MUSCLE PARESIS [None]
  - FACIAL PALSY [None]
